FAERS Safety Report 9265864 (Version 4)
Quarter: 2013Q2

REPORT INFORMATION
  Report Type: Spontaneous
  Country: BR (occurrence: BR)
  Receive Date: 20130501
  Receipt Date: 20130611
  Transmission Date: 20140414
  Serious: Yes (Other)
  Sender: FDA-Public Use
  Company Number: BR-PFIZER INC-2013135624

PATIENT
  Age: 55 Year
  Sex: Female
  Weight: 75 kg

DRUGS (6)
  1. LYRICA [Suspect]
     Indication: SLEEP DISORDER
     Dosage: 75 MG, 2X/DAY, EVERY 12 HOURS
     Route: 048
     Dates: start: 201110
  2. LYRICA [Suspect]
     Indication: PAIN
  3. LYRICA [Suspect]
     Indication: NEURALGIA
  4. CELEBRA [Concomitant]
     Indication: PAIN
     Dosage: TWO CAPSULES OF 200MG DAILY
     Route: 048
     Dates: start: 2011
  5. ULTRACET [Concomitant]
     Indication: ANTIINFLAMMATORY THERAPY
     Dosage: TWO UNITS OF UNSPECIFIED DOSAGE DAILY
     Dates: start: 2011
  6. BENZIFLEX [Concomitant]
     Indication: PAIN
     Dosage: TWO UNITS OF UNSPECIFIED DOSAGE DAILY
     Dates: start: 2011

REACTIONS (4)
  - Off label use [Unknown]
  - Intervertebral disc protrusion [Recovering/Resolving]
  - Hip fracture [Recovering/Resolving]
  - Back pain [Recovering/Resolving]
